FAERS Safety Report 9011335 (Version 2)
Quarter: 2013Q1

REPORT INFORMATION
  Report Type: Report from Study
  Country: CA (occurrence: CA)
  Receive Date: 20130108
  Receipt Date: 20130313
  Transmission Date: 20140127
  Serious: Yes (Other)
  Sender: FDA-Public Use
  Company Number: CA-JNJFOC-20130101044

PATIENT
  Age: 70 Year
  Sex: Female
  Weight: 58.97 kg

DRUGS (17)
  1. REMICADE [Suspect]
     Indication: RHEUMATOID ARTHRITIS
     Route: 042
     Dates: start: 20130227
  2. REMICADE [Suspect]
     Indication: RHEUMATOID ARTHRITIS
     Route: 042
     Dates: start: 20110824
  3. REMICADE [Suspect]
     Indication: RHEUMATOID ARTHRITIS
     Route: 042
     Dates: start: 20121227, end: 20121227
  4. BENADRYL [Concomitant]
     Indication: PREMEDICATION
     Route: 065
  5. TYLENOL [Concomitant]
     Indication: PREMEDICATION
     Route: 065
  6. VENLAFAXINE [Concomitant]
     Dosage: XR (EXTENDED RELEASE)
     Route: 065
  7. METHOTREXATE [Concomitant]
     Route: 065
  8. DIAZEPAM [Concomitant]
     Dosage: AS REQUIRED
     Route: 065
  9. ZOPICLONE [Concomitant]
     Route: 065
  10. CRESTOR [Concomitant]
     Route: 065
  11. FOSAMAX [Concomitant]
     Route: 065
  12. CALCIUM [Concomitant]
     Route: 065
  13. VITAMIN B [Concomitant]
     Route: 065
  14. VITAMIN D [Concomitant]
     Route: 065
  15. FOLIC ACID [Concomitant]
     Dosage: 5 DAYS/WEEK
     Route: 065
  16. PREDNISONE [Concomitant]
     Dosage: WHEN REQUIRED
     Route: 065
  17. TYLENOL ES STRENGTH [Concomitant]
     Dosage: IF NEEDED
     Route: 065

REACTIONS (11)
  - Restlessness [Recovered/Resolved]
  - Anxiety [Recovered/Resolved]
  - Hypoaesthesia [Recovered/Resolved]
  - Blood pressure increased [Recovered/Resolved]
  - Feeling cold [Recovered/Resolved]
  - Infusion related reaction [Recovered/Resolved]
  - Chills [Recovered/Resolved]
  - Body temperature increased [Recovered/Resolved]
  - Tension headache [Recovered/Resolved]
  - Feeling jittery [Recovered/Resolved]
  - Musculoskeletal stiffness [Recovered/Resolved]
